FAERS Safety Report 25493396 (Version 1)
Quarter: 2025Q2

REPORT INFORMATION
  Report Type: Spontaneous
  Country: CH (occurrence: CH)
  Receive Date: 20250630
  Receipt Date: 20250630
  Transmission Date: 20250716
  Serious: Yes (Hospitalization)
  Sender: MYLAN
  Company Number: None

PATIENT
  Age: 56 Year
  Sex: Male

DRUGS (8)
  1. XANAX [Interacting]
     Active Substance: ALPRAZOLAM
     Indication: Product used for unknown indication
     Dosage: 1.5 MILLIGRAM, BID (1.5 MG 2 X DAILY)
  2. XANAX [Interacting]
     Active Substance: ALPRAZOLAM
  3. ESCITALOPRAM [Interacting]
     Active Substance: ESCITALOPRAM OXALATE
     Indication: Product used for unknown indication
     Dosage: 20 MILLIGRAM, QD (20 MG 1 X DAILY)
  4. RISPERIDONE [Interacting]
     Active Substance: RISPERIDONE
     Indication: Product used for unknown indication
     Dosage: 50 MILLIGRAM, Q2W (50 MG EVERY 2 WEEKS)
  5. MORPHINE SULFATE [Interacting]
     Active Substance: MORPHINE SULFATE
     Indication: Product used for unknown indication
     Dosage: 100 MILLIGRAM, BID (100 MG 2 X DAILY)
  6. METHYLPHENIDATE HYDROCHLORIDE [Concomitant]
     Active Substance: METHYLPHENIDATE HYDROCHLORIDE
     Dosage: 10 MILLIGRAM, Q8H (10 MG 3 X DAILY)
  7. ELIQUIS [Concomitant]
     Active Substance: APIXABAN
     Dosage: 2.5 MILLIGRAM, BID (2.5 MG 2 X DAILY)
     Dates: start: 2022
  8. METFORMIN HYDROCHLORIDE [Concomitant]
     Active Substance: METFORMIN HYDROCHLORIDE
     Dosage: 500 MILLIGRAM, QD (500 MG 1 X DAILY)

REACTIONS (7)
  - Respiratory failure [Recovering/Resolving]
  - Psychomotor retardation [Recovering/Resolving]
  - Lacrimation increased [Recovering/Resolving]
  - Miosis [Recovering/Resolving]
  - Drug interaction [Recovering/Resolving]
  - Bradycardia [Recovered/Resolved]
  - Urinary retention [Recovering/Resolving]

NARRATIVE: CASE EVENT DATE: 20250523
